FAERS Safety Report 16053137 (Version 1)
Quarter: 2019Q1

REPORT INFORMATION
  Report Type: Spontaneous
  Country: US (occurrence: US)
  Receive Date: 20190308
  Receipt Date: 20190308
  Transmission Date: 20190418
  Serious: Yes (Hospitalization)
  Sender: FDA-Public Use
  Company Number: US-009507513-1903USA000530

PATIENT
  Sex: Male
  Weight: 86 kg

DRUGS (5)
  1. VENLAFAXINE HYDROCHLORIDE. [Concomitant]
     Active Substance: VENLAFAXINE HYDROCHLORIDE
     Dosage: 1 TABLET (75 MILLIGRAM), QD
     Dates: start: 2014
  2. PRINIVIL [Suspect]
     Active Substance: LISINOPRIL
     Dosage: 1 TABLET (40 MILLIGRAM), QD
     Route: 048
     Dates: start: 201404
  3. PROPRANOLOL [Concomitant]
     Active Substance: PROPRANOLOL HYDROCHLORIDE
     Dosage: 1 TABLET (80 MILLIGRAM), QD
     Route: 048
     Dates: start: 2014
  4. LYRICA [Suspect]
     Active Substance: PREGABALIN
     Indication: SENSORY DISTURBANCE
     Dosage: UNK
     Dates: start: 2014
  5. GABAPENTIN. [Concomitant]
     Active Substance: GABAPENTIN
     Dosage: 1 TABLET (600 MILLIGRAM), THREE
     Route: 048
     Dates: start: 2012

REACTIONS (1)
  - Adverse event [Unknown]
